FAERS Safety Report 13012974 (Version 1)
Quarter: 2016Q4

REPORT INFORMATION
  Report Type: Spontaneous
  Country: US (occurrence: US)
  Receive Date: 20161208
  Receipt Date: 20161208
  Transmission Date: 20170207
  Serious: Yes (Hospitalization)
  Sender: FDA-Public Use
  Company Number: None

PATIENT
  Age: 64 Year
  Sex: Male
  Weight: 108 kg

DRUGS (2)
  1. CAPECITABINE. [Suspect]
     Active Substance: CAPECITABINE
     Indication: PANCREATIC CARCINOMA
     Route: 048
     Dates: start: 20161109, end: 20161118
  2. SBRT [Concomitant]

REACTIONS (10)
  - Malaise [None]
  - Diarrhoea [None]
  - Jaundice [None]
  - Dilatation intrahepatic duct acquired [None]
  - Nausea [None]
  - Fatigue [None]
  - Device occlusion [None]
  - Gallbladder enlargement [None]
  - Abscess [None]
  - Abdominal pain upper [None]

NARRATIVE: CASE EVENT DATE: 20161128
